FAERS Safety Report 17729094 (Version 3)
Quarter: 2020Q3

REPORT INFORMATION
  Report Type: Spontaneous
  Country: US (occurrence: US)
  Receive Date: 20200430
  Receipt Date: 20200916
  Transmission Date: 20201102
  Serious: No
  Sender: FDA-Public Use
  Company Number: US-SA-2020SA110853

PATIENT

DRUGS (1)
  1. PRALUENT [Suspect]
     Active Substance: ALIROCUMAB
     Indication: HYPERCHOLESTEROLAEMIA
     Dosage: 150 MG, QOW
     Dates: start: 201808

REACTIONS (2)
  - Scratch [Not Recovered/Not Resolved]
  - Device operational issue [Not Recovered/Not Resolved]

NARRATIVE: CASE EVENT DATE: 20200425
